FAERS Safety Report 11864761 (Version 1)
Quarter: 2015Q4

REPORT INFORMATION
  Report Type: Spontaneous
  Country: JP (occurrence: JP)
  Receive Date: 20151223
  Receipt Date: 20151223
  Transmission Date: 20160305
  Serious: Yes (Other)
  Sender: FDA-Public Use
  Company Number: JP-FERRINGPH-2015FE03926

PATIENT

DRUGS (4)
  1. LUTINUS [Suspect]
     Active Substance: PROGESTERONE
     Indication: ASSISTED FERTILISATION
     Dosage: 300 MG, DAILY
     Route: 067
     Dates: start: 20150925, end: 20151002
  2. LUTORAL [Concomitant]
     Active Substance: CHLORMADINONE ACETATE\MESTRANOL
     Indication: PROGESTIN REPLACEMENT THERAPY
     Dosage: 12 MG, DAILY
     Route: 048
     Dates: start: 20150925, end: 20151112
  3. ESTRANA [Concomitant]
     Indication: HORMONE REPLACEMENT THERAPY
     Dosage: 2.16 MG, DAILY
     Route: 062
     Dates: start: 20150913, end: 20151112
  4. PROGESTERONE. [Concomitant]
     Active Substance: PROGESTERONE
     Indication: PROGESTIN REPLACEMENT THERAPY
     Dosage: 50 MG, DAILY
     Route: 030
     Dates: start: 20151002, end: 20151106

REACTIONS (1)
  - Peritonitis [Recovered/Resolved]

NARRATIVE: CASE EVENT DATE: 20151001
